FAERS Safety Report 9951805 (Version 2)
Quarter: 2014Q2

REPORT INFORMATION
  Report Type: Spontaneous
  Country: FR (occurrence: FR)
  Receive Date: 20140304
  Receipt Date: 20140422
  Transmission Date: 20141212
  Serious: Yes (Hospitalization)
  Sender: FDA-Public Use
  Company Number: FR-SA-2014SA023884

PATIENT
  Age: 65 Year
  Sex: Female

DRUGS (7)
  1. GLUCOPHAGE [Suspect]
     Indication: DIABETES MELLITUS
     Route: 048
  2. SIMVASTATIN [Suspect]
     Indication: HYPERCHOLESTEROLAEMIA
     Route: 048
  3. APROVEL [Suspect]
     Indication: HYPERTENSION
     Route: 048
  4. TERCIAN [Suspect]
     Indication: HYPERTENSION
     Route: 048
  5. PARKINANE [Suspect]
     Indication: PSYCHOTIC DISORDER
     Route: 048
  6. RISPERDAL [Suspect]
     Indication: PSYCHOTIC DISORDER
     Route: 048
  7. EFFEXOR [Suspect]
     Indication: DEPRESSION
     Route: 048

REACTIONS (1)
  - Pemphigoid [Not Recovered/Not Resolved]
